FAERS Safety Report 7214198-3 (Version None)
Quarter: 2011Q1

REPORT INFORMATION
  Report Type: 
  Country: None (occurrence: None)
  Receive Date: 20110107
  Receipt Date: 20101229
  Transmission Date: 20110831
  Serious: Yes (Death, Other)
  Sender: FDA-Public Use
  Company Number: IT-SANOFI-AVENTIS-2011SA000719

PATIENT
  Age: 48 Year
  Sex: Female

DRUGS (6)
  1. CAMPATH [Suspect]
     Route: 065
  2. CHLORAMBUCIL [Suspect]
     Route: 065
  3. CYTOXAN [Suspect]
     Route: 065
  4. RITUXIMAB [Suspect]
     Route: 065
  5. FLUDARABINE PHOSPHATE [Suspect]
     Route: 065
  6. METHYLPREDNISOLONE [Suspect]
     Route: 065

REACTIONS (2)
  - DISEASE PROGRESSION [None]
  - AUTOIMMUNE THROMBOCYTOPENIA [None]
